FAERS Safety Report 8845822 (Version 1)
Quarter: 2012Q4

REPORT INFORMATION
  Report Type: 
  Country: FR (occurrence: FR)
  Receive Date: 20121017
  Receipt Date: 20121017
  Transmission Date: 20130627
  Serious: Yes (Other)
  Sender: FDA-Public Use
  Company Number: FR-ABBOTT-12P-056-0994323-00

PATIENT
  Age: 23 Year
  Sex: Female

DRUGS (2)
  1. HUMIRA [Suspect]
     Indication: COLITIS ULCERATIVE
     Dates: end: 20100226
  2. CORTICOIDS NOS [Concomitant]
     Indication: COLITIS ULCERATIVE
     Route: 048

REACTIONS (6)
  - VIIth nerve paralysis [Not Recovered/Not Resolved]
  - Ear pain [Not Recovered/Not Resolved]
  - Pain [Not Recovered/Not Resolved]
  - Motor dysfunction [Not Recovered/Not Resolved]
  - Paresis [Not Recovered/Not Resolved]
  - Facial spasm [Not Recovered/Not Resolved]
